FAERS Safety Report 6134920-7 (Version None)
Quarter: 2009Q1

REPORT INFORMATION
  Report Type: 
  Country: None (occurrence: None)
  Receive Date: 20090327
  Receipt Date: 20090316
  Transmission Date: 20090719
  Serious: Yes (Hospitalization)
  Sender: FDA-Public Use
  Company Number: DE-PFIZER INC-2009172369

PATIENT

DRUGS (4)
  1. LYRICA [Suspect]
     Indication: POLYNEUROPATHY
     Dosage: 150 MG, 1X/DAY
     Route: 048
     Dates: start: 20090217, end: 20090220
  2. BIPRETERAX [Concomitant]
  3. THYRONAJOD [Concomitant]
  4. OMEPRAZOLE [Concomitant]

REACTIONS (1)
  - THROMBOSIS [None]
